FAERS Safety Report 13536172 (Version 1)
Quarter: 2017Q2

REPORT INFORMATION
  Report Type: Spontaneous
  Country: US (occurrence: US)
  Receive Date: 20170511
  Receipt Date: 20170511
  Transmission Date: 20170830
  Serious: Yes (Hospitalization)
  Sender: FDA-Public Use
  Company Number: US-VIFOR (INTERNATIONAL) INC.-VIT-2017-05041

PATIENT
  Sex: Male

DRUGS (13)
  1. REMERON [Concomitant]
     Active Substance: MIRTAZAPINE
  2. ATORVASTATIN CALCIUM. [Concomitant]
     Active Substance: ATORVASTATIN CALCIUM
  3. ERGOCALCIFEROL. [Concomitant]
     Active Substance: ERGOCALCIFEROL
  4. COMBIVENT RESPIMAT [Concomitant]
     Active Substance: ALBUTEROL SULFATE\IPRATROPIUM BROMIDE
  5. SODIUM BICARBONATE. [Concomitant]
     Active Substance: SODIUM BICARBONATE
  6. PARACETAMOL [Concomitant]
     Active Substance: ACETAMINOPHEN
  7. VELTASSA [Suspect]
     Active Substance: PATIROMER
     Indication: HYPERKALAEMIA
     Route: 048
     Dates: start: 20161217
  8. FUROSEMIDE. [Concomitant]
     Active Substance: FUROSEMIDE
  9. CARVEDILOL. [Concomitant]
     Active Substance: CARVEDILOL
  10. LEVEMIR [Concomitant]
     Active Substance: INSULIN DETEMIR
  11. FERROUS SULFATE. [Concomitant]
     Active Substance: FERROUS SULFATE
  12. RANITIDINE HYDROCHLORIDE. [Concomitant]
     Active Substance: RANITIDINE HYDROCHLORIDE
  13. ERGOCALCIFEROL. [Concomitant]
     Active Substance: ERGOCALCIFEROL

REACTIONS (1)
  - Hypertension [Unknown]
